FAERS Safety Report 7403619-9 (Version None)
Quarter: 2011Q2

REPORT INFORMATION
  Report Type: 
  Country: None (occurrence: None)
  Receive Date: 20110408
  Receipt Date: 20110405
  Transmission Date: 20111010
  Serious: Yes (Hospitalization)
  Sender: FDA-Public Use
  Company Number: JP-PFIZER INC-2011076234

PATIENT
  Age: 69 Year
  Sex: Female

DRUGS (8)
  1. LIPITOR [Concomitant]
     Dosage: UNK
  2. MAGNESIUM OXIDE [Concomitant]
     Dosage: UNK
  3. ACETYLSALICYLIC ACID [Concomitant]
     Dosage: UNK
  4. TAKEPRON [Concomitant]
     Dosage: UNK
  5. PROMAC /JPN/ [Concomitant]
     Dosage: UNK
  6. NOVORAPID [Concomitant]
     Dosage: UNK
  7. MAINTATE [Concomitant]
     Dosage: UNK
  8. SEIBULE [Suspect]
     Dosage: 50 MG, 3X/DAY
     Route: 048
     Dates: start: 20101124

REACTIONS (1)
  - CARDIAC FAILURE [None]
